FAERS Safety Report 21165746 (Version 7)
Quarter: 2023Q1

REPORT INFORMATION
  Report Type: Spontaneous
  Country: JP (occurrence: JP)
  Receive Date: 20220803
  Receipt Date: 20230306
  Transmission Date: 20230418
  Serious: Yes (Death, Hospitalization, Other)
  Sender: FDA-Public Use
  Company Number: JP-BRISTOL-MYERS SQUIBB COMPANY-2022-083362

PATIENT
  Age: 66 Year
  Sex: Male
  Weight: 70 kg

DRUGS (21)
  1. YERVOY [Suspect]
     Active Substance: IPILIMUMAB
     Indication: Non-small cell lung cancer recurrent
     Route: 041
     Dates: start: 20220304, end: 20220304
  2. YERVOY [Suspect]
     Active Substance: IPILIMUMAB
     Route: 041
     Dates: start: 20220401, end: 20220401
  3. YERVOY [Suspect]
     Active Substance: IPILIMUMAB
     Dosage: 2 COURSES
     Route: 041
     Dates: start: 20220114, end: 20220204
  4. OPDIVO [Suspect]
     Active Substance: NIVOLUMAB
     Indication: Non-small cell lung cancer recurrent
     Route: 041
     Dates: start: 20220304, end: 20220304
  5. OPDIVO [Suspect]
     Active Substance: NIVOLUMAB
     Route: 041
     Dates: start: 20220325, end: 20220325
  6. OPDIVO [Suspect]
     Active Substance: NIVOLUMAB
     Route: 041
     Dates: start: 20220401, end: 20220401
  7. OPDIVO [Suspect]
     Active Substance: NIVOLUMAB
     Route: 041
     Dates: start: 20220422, end: 20220422
  8. OPDIVO [Suspect]
     Active Substance: NIVOLUMAB
     Dosage: 2 COURSES
     Route: 041
     Dates: start: 20220114, end: 20220204
  9. CARBOPLATIN [Suspect]
     Active Substance: CARBOPLATIN
     Indication: Non-small cell lung cancer recurrent
     Dosage: 2 COURSES
     Dates: start: 20220114, end: 20220204
  10. PEMETREXED [Suspect]
     Active Substance: PEMETREXED
     Indication: Non-small cell lung cancer recurrent
     Dosage: 2 COURSES
     Dates: start: 20220114, end: 20220204
  11. TRELEGY ELLIPTA [Concomitant]
     Active Substance: FLUTICASONE FUROATE\UMECLIDINIUM BROMIDE\VILANTEROL TRIFENATATE
     Indication: Product used for unknown indication
     Dosage: 200 PER DAY
     Route: 055
     Dates: end: 20220511
  12. BISOPROLOL FUMARATE [Concomitant]
     Active Substance: BISOPROLOL FUMARATE
     Indication: Product used for unknown indication
     Dosage: 1 TABLET
     Route: 048
  13. ASPIRIN [Concomitant]
     Active Substance: ASPIRIN
     Indication: Product used for unknown indication
     Dosage: 1 TABLET
     Route: 048
     Dates: end: 20220511
  14. LANSOPRAZOLE [Concomitant]
     Active Substance: LANSOPRAZOLE
     Indication: Product used for unknown indication
     Dosage: 1 TABLET
     Route: 048
     Dates: end: 20220511
  15. SPIRONOLACTONE [Concomitant]
     Active Substance: SPIRONOLACTONE
     Indication: Product used for unknown indication
     Dosage: 1 TABLET
     Route: 048
     Dates: end: 20220511
  16. JANUVIA [Concomitant]
     Active Substance: SITAGLIPTIN PHOSPHATE
     Indication: Product used for unknown indication
     Dosage: 1 TABLET
     Route: 048
     Dates: end: 20220511
  17. METFORMIN [Concomitant]
     Active Substance: METFORMIN HYDROCHLORIDE
     Indication: Product used for unknown indication
     Dosage: 4 TABLETS
     Route: 048
     Dates: end: 20220511
  18. JARDIANCE [Concomitant]
     Active Substance: EMPAGLIFLOZIN
     Indication: Product used for unknown indication
     Dosage: 2.5 TABLETS
     Route: 048
     Dates: end: 20220511
  19. ROSUVASTATIN [Concomitant]
     Active Substance: ROSUVASTATIN
     Indication: Product used for unknown indication
     Dosage: 2 TABLETS
     Route: 048
     Dates: end: 20220511
  20. EZETIMIBE [Concomitant]
     Active Substance: EZETIMIBE
     Indication: Product used for unknown indication
     Dosage: 1 TABLETS
     Route: 048
     Dates: end: 20220511
  21. HYDROCORTISONE SODIUM SUCCINATE [Concomitant]
     Active Substance: HYDROCORTISONE SODIUM SUCCINATE
     Indication: Product used for unknown indication
     Route: 041
     Dates: start: 20220510

REACTIONS (8)
  - Adrenocortical insufficiency acute [Fatal]
  - Shock [Fatal]
  - Hypothyroidism [Not Recovered/Not Resolved]
  - Rash papular [Recovered/Resolved]
  - Hypophysitis [Unknown]
  - Hyperthyroidism [Unknown]
  - Malaise [Unknown]
  - Secondary adrenocortical insufficiency [Unknown]

NARRATIVE: CASE EVENT DATE: 20220125
